FAERS Safety Report 18924629 (Version 1)
Quarter: 2021Q1

REPORT INFORMATION
  Report Type: Spontaneous
  Country: US (occurrence: US)
  Receive Date: 20210223
  Receipt Date: 20210223
  Transmission Date: 20210420
  Serious: Yes (Other)
  Sender: FDA-Public Use
  Company Number: US-GRANULES-US-2021GRASPO00142

PATIENT
  Age: 63 Year
  Sex: Female
  Weight: 175 kg

DRUGS (4)
  1. IBUPROFEN. [Interacting]
     Active Substance: IBUPROFEN
     Indication: JOINT STIFFNESS
     Route: 065
  2. METFORMIN HYDROCHLORIDE. [Suspect]
     Active Substance: METFORMIN HYDROCHLORIDE
     Indication: DIABETES MELLITUS
     Route: 048
     Dates: start: 202012, end: 20201231
  3. VITAMIN D3 [Concomitant]
     Active Substance: CHOLECALCIFEROL
     Indication: PRODUCT USED FOR UNKNOWN INDICATION
     Route: 065
  4. IBUPROFEN. [Interacting]
     Active Substance: IBUPROFEN
     Indication: ARTHRALGIA

REACTIONS (3)
  - Rheumatoid arthritis [Recovering/Resolving]
  - Musculoskeletal stiffness [Recovering/Resolving]
  - Neck pain [Recovering/Resolving]

NARRATIVE: CASE EVENT DATE: 20201231
